FAERS Safety Report 6773582-2 (Version None)
Quarter: 2010Q2

REPORT INFORMATION
  Report Type: 
  Country: None (occurrence: None)
  Receive Date: 20100614
  Receipt Date: 20100609
  Transmission Date: 20101027
  Serious: Yes (Hospitalization)
  Sender: FDA-Public Use
  Company Number: 2010SP032497

PATIENT
  Age: 25 Year
  Sex: Female

DRUGS (2)
  1. IMPLANON [Suspect]
     Indication: CONTRACEPTION
     Dosage: 68 MG
     Dates: start: 20090101, end: 20100511
  2. FUROSEMIDE (CON.) [Concomitant]

REACTIONS (4)
  - ABORTION INDUCED [None]
  - DRUG EXPOSURE DURING PREGNANCY [None]
  - POST PROCEDURAL COMPLICATION [None]
  - PREGNANCY WITH IMPLANT CONTRACEPTIVE [None]
